FAERS Safety Report 19572711 (Version 2)
Quarter: 2021Q3

REPORT INFORMATION
  Report Type: Spontaneous
  Country: US (occurrence: US)
  Receive Date: 20210716
  Receipt Date: 20210719
  Transmission Date: 20211014
  Serious: No
  Sender: FDA-Public Use
  Company Number: NVSC2021US156469

PATIENT
  Sex: Female

DRUGS (2)
  1. ENTRESTO [Suspect]
     Active Substance: SACUBITRIL\VALSARTAN
     Dosage: 2.5 DF, STARTED IN JUN, 1 IN THE MORNING AND 1 PLUS HALF TABLETS AT NIGHT.
     Route: 065
  2. ENTRESTO [Suspect]
     Active Substance: SACUBITRIL\VALSARTAN
     Indication: PRODUCT USED FOR UNKNOWN INDICATION
     Dosage: 24/26, BID
     Route: 065
     Dates: start: 2016

REACTIONS (4)
  - Dizziness [Unknown]
  - Incorrect dose administered [Unknown]
  - Hypotension [Unknown]
  - Balance disorder [Unknown]
